FAERS Safety Report 6197760-9 (Version None)
Quarter: 2009Q2

REPORT INFORMATION
  Report Type: 
  Country: None (occurrence: None)
  Receive Date: 20090521
  Receipt Date: 20090512
  Transmission Date: 20091009
  Serious: Yes (Hospitalization, Other)
  Sender: FDA-Public Use
  Company Number: DK-NOVOPROD-287181

PATIENT
  Age: 49 Year
  Sex: Female

DRUGS (2)
  1. INSULATARD FLEXPEN [Suspect]
     Indication: DIABETES MELLITUS
     Dates: start: 19890101
  2. NOVOLOG [Suspect]
     Indication: DIABETES MELLITUS
     Dosage: 3+6+6 UNK, UNK

REACTIONS (3)
  - HYPOGLYCAEMIC UNCONSCIOUSNESS [None]
  - LOSS OF CONSCIOUSNESS [None]
  - PRODUCT QUALITY ISSUE [None]
